FAERS Safety Report 9798780 (Version 2)
Quarter: 2014Q1

REPORT INFORMATION
  Report Type: Spontaneous
  Country: US (occurrence: US)
  Receive Date: 20140106
  Receipt Date: 20140106
  Transmission Date: 20141002
  Serious: No
  Sender: FDA-Public Use
  Company Number: US-GILEAD-2010-0029994

PATIENT
  Sex: Female
  Weight: 62.6 kg

DRUGS (19)
  1. LETAIRIS [Suspect]
     Indication: PULMONARY ARTERIAL HYPERTENSION
     Route: 048
     Dates: start: 20100604
  2. PRILOSEC [Concomitant]
  3. ZOCOR [Concomitant]
  4. COREG [Concomitant]
  5. CREON DR [Concomitant]
  6. LASIX [Concomitant]
  7. ALBUTEROL [Concomitant]
  8. GLUCOTROL [Concomitant]
  9. TRICOR [Concomitant]
  10. IMDUR [Concomitant]
  11. NITROGLYCERIN [Concomitant]
  12. ADVAIR HFA [Concomitant]
  13. TESSALON [Concomitant]
  14. MULTIVITAMIN [Concomitant]
  15. CALCIUM [Concomitant]
  16. OXYGEN [Concomitant]
  17. FISH OIL [Concomitant]
  18. LEVOTHYROXIN [Concomitant]
  19. ASPIRIN [Concomitant]

REACTIONS (1)
  - Dyspnoea [Recovering/Resolving]
